FAERS Safety Report 12215886 (Version 3)
Quarter: 2016Q2

REPORT INFORMATION
  Report Type: Spontaneous
  Country: FR (occurrence: FR)
  Receive Date: 20160328
  Receipt Date: 20160414
  Transmission Date: 20160815
  Serious: Yes (Other)
  Sender: FDA-Public Use
  Company Number: FR-009507513-1603FRA011656

PATIENT
  Age: 27 Year
  Sex: Female

DRUGS (3)
  1. OXYCONTIN [Concomitant]
     Active Substance: OXYCODONE HYDROCHLORIDE
     Route: 048
  2. DIPROSALIC [Suspect]
     Active Substance: BETAMETHASONE DIPROPIONATE
     Dosage: UNK
     Dates: start: 20160221, end: 20160221
  3. NEURONTIN [Concomitant]
     Active Substance: GABAPENTIN
     Route: 048

REACTIONS (6)
  - Photopsia [Recovered/Resolved]
  - Product packaging confusion [Recovered/Resolved]
  - Conjunctival haemorrhage [Recovered/Resolved]
  - Blepharospasm [Recovered/Resolved]
  - Eye irritation [Recovered/Resolved]
  - Ocular discomfort [Recovered/Resolved]
